FAERS Safety Report 4616310-9 (Version None)
Quarter: 2005Q1

REPORT INFORMATION
  Report Type: 
  Country: None (occurrence: None)
  Receive Date: 20050321
  Receipt Date: 20050307
  Transmission Date: 20050727
  Serious: Yes (Hospitalization, Other)
  Sender: FDA-Public Use
  Company Number: 2005042482

PATIENT
  Sex: Male
  Weight: 95.2554 kg

DRUGS (3)
  1. NEURONTIN [Suspect]
     Indication: CONVULSION
     Dosage: ORAL
     Route: 048
  2. SERTRALINE HCL [Concomitant]
  3. FLURAZEPAM [Concomitant]

REACTIONS (11)
  - BLINDNESS [None]
  - CEREBROVASCULAR ACCIDENT [None]
  - DRUG HYPERSENSITIVITY [None]
  - GASTROINTESTINAL DISORDER [None]
  - HAEMORRHAGE [None]
  - HALLUCINATION, VISUAL [None]
  - MACULAR DEGENERATION [None]
  - MYOCARDIAL INFARCTION [None]
  - PHOTOPSIA [None]
  - SUICIDAL IDEATION [None]
  - VISUAL FIELD DEFECT [None]
